FAERS Safety Report 15698530 (Version 1)
Quarter: 2018Q4

REPORT INFORMATION
  Report Type: Spontaneous
  Country: US (occurrence: US)
  Receive Date: 20181126
  Receipt Date: 20181126
  Transmission Date: 20190205
  Serious: Yes (Hospitalization)
  Sender: FDA-Public Use
  Company Number: None

PATIENT
  Age: 74 Year
  Sex: Female
  Weight: 72.12 kg

DRUGS (2)
  1. CYCLOPHOSPHAMIDE 500MG/M2 [Suspect]
     Active Substance: CYCLOPHOSPHAMIDE
  2. FLUDARABINE [Suspect]
     Active Substance: FLUDARABINE PHOSPHATE
     Indication: PRODUCT USED FOR UNKNOWN INDICATION

REACTIONS (5)
  - Fall [None]
  - Febrile neutropenia [None]
  - Culture stool positive [None]
  - Clostridium difficile infection [None]
  - Haemoglobin decreased [None]

NARRATIVE: CASE EVENT DATE: 20181006
